FAERS Safety Report 8033617-6 (Version None)
Quarter: 2011Q4

REPORT INFORMATION
  Report Type: 
  Country: None (occurrence: None)
  Receive Date: 20111202
  Receipt Date: 20091221
  Transmission Date: 20120403
  Serious: Yes (Life-Threatening, Hospitalization, Disabling)
  Sender: FDA-Public Use
  Company Number: 2009SP043045

PATIENT
  Age: 22 Year
  Sex: Female
  Weight: 56.6996 kg

DRUGS (1)
  1. NUVARING [Suspect]
     Indication: CONTRACEPTION
     Dates: start: 20081001, end: 20081124

REACTIONS (4)
  - VULVOVAGINAL DISCOMFORT [None]
  - LEUKOCYTOSIS [None]
  - FATIGUE [None]
  - CEREBELLAR INFARCTION [None]
